FAERS Safety Report 6094245-5 (Version None)
Quarter: 2009Q1

REPORT INFORMATION
  Report Type: 
  Country: None (occurrence: None)
  Receive Date: 20090226
  Receipt Date: 20090216
  Transmission Date: 20090719
  Serious: Yes (Death)
  Sender: FDA-Public Use
  Company Number: CA-ABBOTT-08P-028-0474552-02

PATIENT
  Sex: Male
  Weight: 79 kg

DRUGS (23)
  1. HUMIRA [Suspect]
     Indication: PSORIASIS
     Route: 058
     Dates: end: 20080822
  2. UNISOM [Concomitant]
     Indication: INSOMNIA
     Dates: start: 20030601
  3. CEPHALEXIN [Concomitant]
     Indication: ABSCESS
     Dates: start: 20050920, end: 20051107
  4. ADVIL [Concomitant]
     Indication: HAND FRACTURE
     Dates: start: 20061002, end: 20061010
  5. ADVIL [Concomitant]
     Dates: start: 20061011
  6. IMOVANE [Concomitant]
     Indication: OVERDOSE
     Dosage: 100 TABLETS
     Dates: start: 20070206, end: 20070206
  7. IMOVANE [Concomitant]
     Indication: SUICIDE ATTEMPT
  8. PLAVIX [Concomitant]
     Indication: CARDIOVASCULAR EVENT PROPHYLAXIS
     Dates: start: 20080302, end: 20080303
  9. PLAVIX [Concomitant]
     Dates: start: 20080302, end: 20080302
  10. ASPIRIN [Concomitant]
     Indication: CARDIOVASCULAR EVENT PROPHYLAXIS
     Dates: start: 20080302, end: 20080303
  11. PREVACID [Concomitant]
     Indication: GASTROOESOPHAGEAL REFLUX DISEASE
     Dates: start: 20080302, end: 20080303
  12. ATIVAN [Concomitant]
     Indication: AGITATION
     Dates: start: 20080302, end: 20080303
  13. ATIVAN [Concomitant]
     Indication: PROPHYLAXIS
  14. VALIUM [Concomitant]
     Indication: AGITATION
     Dosage: 5 - 10 MG
     Dates: start: 20080303, end: 20080304
  15. VALIUM [Concomitant]
     Indication: PROPHYLAXIS
  16. TYLENOL W/ CODEINE NO. 3 [Concomitant]
     Indication: BACK PAIN
     Dates: start: 20071126, end: 20080301
  17. VITAMIN B COMPLEX CAP [Concomitant]
     Indication: ROUTINE HEALTH MAINTENANCE
     Dates: start: 20050101
  18. VITAMIN A [Concomitant]
     Indication: ROUTINE HEALTH MAINTENANCE
     Dates: start: 20070601
  19. NICODERM [Concomitant]
     Indication: TOBACCO WITHDRAWAL SYMPTOMS
     Dosage: 14 MG/HR
     Route: 061
     Dates: start: 20080302, end: 20080302
  20. NICODERM [Concomitant]
     Indication: PROPHYLAXIS
  21. LOVENOX [Concomitant]
     Indication: CARDIOVASCULAR EVENT PROPHYLAXIS
     Route: 058
     Dates: start: 20080302, end: 20080302
  22. GAVISCON [Concomitant]
     Indication: GASTROOESOPHAGEAL REFLUX DISEASE
     Dates: start: 20080315
  23. METOPROLOL [Concomitant]
     Indication: CARDIOVASCULAR EVENT PROPHYLAXIS
     Dates: start: 20080302, end: 20080303

REACTIONS (2)
  - ARTERIOSCLEROSIS CORONARY ARTERY [None]
  - CORONARY ARTERY INSUFFICIENCY [None]
